FAERS Safety Report 5086899-7 (Version None)
Quarter: 2006Q3

REPORT INFORMATION
  Report Type: 
  Country: None (occurrence: None)
  Receive Date: 20060818
  Receipt Date: 20060810
  Transmission Date: 20061208
  Serious: Yes (Hospitalization, Other)
  Sender: FDA-Public Use
  Company Number: 163-20785-06080411

PATIENT
  Age: 49 Year
  Sex: Female
  Weight: 53 kg

DRUGS (6)
  1. THALOMID [Suspect]
     Indication: NON-SMALL CELL LUNG CANCER
     Dosage: QD STARTING ON DAY 1 AT 200 MG WITH A WEEKLY TITRATION OF 100 MG UP TO 1000 MG.  CYCLE=21 DAYS, ORAL
     Route: 048
     Dates: start: 20060414
  2. PACLITAXEL [Suspect]
     Indication: NON-SMALL CELL LUNG CANCER
     Dosage: 225 MG/M2, OVER 3 HOURS ON DAY 1 EVERY 21 DAYS X 2, INTRAVENOUS
     Route: 042
     Dates: start: 20060414
  3. CARBOPLATIN [Suspect]
     Indication: NON-SMALL CELL LUNG CANCER
     Dosage: AUC = 6 IV OVER 15-30 MIN ON DAY 1 EVERY 21 DAYS X 2
     Route: 042
     Dates: start: 20060414
  4. RADIATION THERAPY [Suspect]
     Indication: NON-SMALL CELL LUNG CANCER
     Dosage: 60 GY OVER 6 WEEKS BEGINNING BETWEEN DAYS 43-50
     Dates: start: 20060414
  5. LOVENOX [Concomitant]
  6. STEROIDS (CORTICOSTEROID NOS) [Concomitant]

REACTIONS (4)
  - DRUG DOSE OMISSION [None]
  - DYSPNOEA [None]
  - LUNG INFILTRATION [None]
  - PNEUMONITIS [None]
